FAERS Safety Report 4960951-6 (Version None)
Quarter: 2006Q1

REPORT INFORMATION
  Report Type: 
  Country: None (occurrence: None)
  Receive Date: 20060328
  Receipt Date: 20060317
  Transmission Date: 20060701
  Serious: Yes (Hospitalization)
  Sender: FDA-Public Use
  Company Number: 223176

PATIENT
  Sex: Male
  Weight: 62 kg

DRUGS (9)
  1. RITUXAN [Suspect]
     Indication: LYMPHOMA
     Dosage: 600 MG, INTRAVENOUS
     Route: 042
     Dates: start: 20040827
  2. DOXORUBICIN HYDROCHLORIDE [Suspect]
     Indication: LYMPHOMA
     Dosage: 80 MG, INTRAVENOUS
     Route: 042
     Dates: start: 20040830
  3. ENDOXAN (CYCLOPHOSPHAMIDE) [Suspect]
     Indication: LYMPHOMA
     Dosage: 1200 MG, INTRAVENOUS
     Route: 042
     Dates: start: 20040830
  4. ONCOVIN [Suspect]
     Indication: LYMPHOMA
     Dosage: 2 MG, INTRAVENOUS
     Route: 042
     Dates: start: 20040830
  5. LOXONIN (LOXOPROFEN SODIUM) [Concomitant]
  6. TAVEGYL                        (CLEMASTINE FUMARATE) [Concomitant]
  7. NASEA         (RAMOSETRON HYDROCHLORIDE) [Concomitant]
  8. LAMIVUDINE [Concomitant]
  9. STARLIX [Concomitant]

REACTIONS (2)
  - GRANULOCYTE COUNT DECREASED [None]
  - NEUTROPHIL PERCENTAGE DECREASED [None]
